FAERS Safety Report 6117173-5 (Version None)
Quarter: 2009Q1

REPORT INFORMATION
  Report Type: 
  Country: None (occurrence: None)
  Receive Date: 20090314
  Receipt Date: 20090108
  Transmission Date: 20090719
  Serious: No
  Sender: FDA-Public Use
  Company Number: US-ABBOTT-09P-163-0496688-00

PATIENT
  Sex: Female

DRUGS (4)
  1. HUMIRA [Suspect]
     Indication: RHEUMATOID ARTHRITIS
     Dates: start: 20061008, end: 20081229
  2. IBUPROFEN [Concomitant]
     Indication: PAIN
  3. ENDOCIN [Concomitant]
     Indication: PAIN
  4. HYDROCODONE BITARTRATE [Concomitant]
     Indication: PAIN

REACTIONS (4)
  - HAEMATOCHEZIA [None]
  - PAIN [None]
  - RHEUMATOID ARTHRITIS [None]
  - VULVOVAGINAL MYCOTIC INFECTION [None]
